FAERS Safety Report 19503594 (Version 1)
Quarter: 2021Q3

REPORT INFORMATION
  Report Type: Spontaneous
  Country: GB (occurrence: GB)
  Receive Date: 20210707
  Receipt Date: 20210707
  Transmission Date: 20211014
  Serious: Yes (Other)
  Sender: FDA-Public Use
  Company Number: GB-ELI_LILLY_AND_COMPANY-GB202106012720

PATIENT
  Age: 74 Year
  Sex: Female

DRUGS (14)
  1. NYSTAN [Concomitant]
     Active Substance: NYSTATIN
     Dosage: UNK, UNKNOWN
     Route: 065
  2. ANISEED [Concomitant]
     Dosage: UNK, UNKNOWN
     Route: 065
  3. ESOMEPRAZOLE. [Concomitant]
     Active Substance: ESOMEPRAZOLE MAGNESIUM
     Dosage: UNK, UNKNOWN
     Route: 065
  4. SODIUM PYRROLIDONE CARBOXYLATE [Concomitant]
     Active Substance: SODIUM PYRROLIDONE CARBOXYLATE
     Dosage: UNK, UNKNOWN
     Route: 065
  5. ACICLOVIR [Concomitant]
     Active Substance: ACYCLOVIR
     Dosage: UNK, UNKNOWN
     Route: 065
  6. TERIPARATIDE [Suspect]
     Active Substance: TERIPARATIDE
     Indication: OSTEOPOROSIS
     Dosage: 20 UG, DAILY
     Route: 003
     Dates: start: 201810, end: 202010
  7. GABAPENTIN. [Concomitant]
     Active Substance: GABAPENTIN
     Dosage: UNK, UNKNOWN
     Route: 065
  8. LORATADINE. [Concomitant]
     Active Substance: LORATADINE
     Dosage: UNK, UNKNOWN
     Route: 065
  9. ZINC. [Concomitant]
     Active Substance: ZINC
     Dosage: 1 DOSAGE FORM, DAILY
     Route: 065
  10. VITAMIN B12 [Concomitant]
     Active Substance: CYANOCOBALAMIN
     Dosage: UNK UNK, UNKNOWN
     Route: 065
  11. COD LIVER OIL [COD?LIVER OIL] [Concomitant]
     Dosage: UNK UNK, UNKNOWN
     Route: 065
  12. FULTIUM D3 [Concomitant]
     Active Substance: CHOLECALCIFEROL
     Dosage: 1 DOSAGE FORM, UNK
     Route: 065
  13. ZAPAIN [Concomitant]
     Active Substance: ACETAMINOPHEN\CODEINE PHOSPHATE
     Dosage: UNK, UNKNOWN
     Route: 065
  14. SIMVASTATIN. [Concomitant]
     Active Substance: SIMVASTATIN
     Dosage: UNK, UNKNOWN
     Route: 065

REACTIONS (2)
  - Burning sensation [Not Recovered/Not Resolved]
  - Incorrect route of product administration [Unknown]

NARRATIVE: CASE EVENT DATE: 201905
